FAERS Safety Report 7100122-0 (Version None)
Quarter: 2010Q4

REPORT INFORMATION
  Report Type: 
  Country: None (occurrence: None)
  Receive Date: 20101112
  Receipt Date: 20100325
  Transmission Date: 20110411
  Serious: No
  Sender: FDA-Public Use
  Company Number: A0849168A

PATIENT
  Age: 57 Year
  Sex: Female

DRUGS (3)
  1. CARVEDILOL [Suspect]
     Indication: CARDIOMYOPATHY
     Dosage: 3.125MG PER DAY
     Route: 048
  2. ZYRTEC [Concomitant]
  3. INHALERS [Concomitant]

REACTIONS (3)
  - DRUG HYPERSENSITIVITY [None]
  - DYSPNOEA [None]
  - MALAISE [None]
